FAERS Safety Report 9979958 (Version 1)
Quarter: 2014Q1

REPORT INFORMATION
  Report Type: Report from Study
  Country: US (occurrence: US)
  Receive Date: 20140307
  Receipt Date: 20140307
  Transmission Date: 20141002
  Serious: No
  Sender: FDA-Public Use
  Company Number: US-ABBVIE-13P-163-1175574-00

PATIENT
  Age: 56 Year
  Sex: Male

DRUGS (4)
  1. HUMIRA [Suspect]
     Indication: PSORIATIC ARTHROPATHY
     Dates: start: 201307
  2. HCTZ [Concomitant]
     Indication: BLOOD PRESSURE
  3. BISOPROLOL [Concomitant]
     Indication: BLOOD PRESSURE
  4. NABUMETONE [Concomitant]
     Indication: PSORIATIC ARTHROPATHY

REACTIONS (4)
  - Sinus headache [Not Recovered/Not Resolved]
  - Tinnitus [Not Recovered/Not Resolved]
  - Headache [Not Recovered/Not Resolved]
  - Ear infection [Unknown]
